FAERS Safety Report 10158030 (Version 3)
Quarter: 2014Q2

REPORT INFORMATION
  Report Type: Report from Study
  Country: US (occurrence: US)
  Receive Date: 20140507
  Receipt Date: 20140520
  Transmission Date: 20141212
  Serious: Yes (Hospitalization, Other)
  Sender: FDA-Public Use
  Company Number: US-BIOMARINAP-US-2014-102711

PATIENT
  Age: 12 Year
  Sex: Female
  Weight: 32.9 kg

DRUGS (16)
  1. NAGLAZYME [Suspect]
     Indication: MUCOPOLYSACCHARIDOSIS VI
     Dosage: 30 MG, QW
     Route: 041
     Dates: start: 20060111
  2. NAGLAZYME [Suspect]
     Dosage: 70 MG, QW
     Route: 041
  3. LORATADINE [Concomitant]
     Indication: HYPERSENSITIVITY
     Dosage: 10 ML, QD
     Route: 048
     Dates: start: 20090729
  4. ALBUTEROL HFA [Concomitant]
     Indication: WHEEZING
     Dosage: UNK, QID
     Dates: start: 20110127
  5. ALBUTEROL HFA [Concomitant]
     Indication: COUGH
  6. FLOVENT HFA [Concomitant]
     Indication: WHEEZING
     Dosage: 44 ?G, BID
     Dates: start: 20110127
  7. FLOVENT HFA [Concomitant]
     Indication: COUGH
  8. DIPHENHYDRAMINE [Concomitant]
     Indication: PREMEDICATION
     Dosage: 12.5 MG, QW
     Route: 048
     Dates: start: 20060111
  9. IBUPROFEN [Concomitant]
     Indication: PREMEDICATION
     Dosage: 100 MG, QW
     Route: 048
     Dates: start: 20060111
  10. IBUPROFEN [Concomitant]
     Dosage: 200 MG, PRN
     Route: 048
  11. CIPRODEX OTIC [Concomitant]
     Indication: PREMEDICATION
     Dosage: UNK, BID
  12. CLARITIN                           /00917501/ [Concomitant]
     Indication: PREMEDICATION
     Dosage: 10 MG, QD
     Route: 048
  13. NAPROSYN                           /00256201/ [Concomitant]
     Indication: PREMEDICATION
     Dosage: 375 MG, PRN
     Route: 048
  14. VASOTEC                            /00574902/ [Concomitant]
     Indication: PREMEDICATION
     Dosage: 2.5 MG, QD
     Route: 048
  15. ALBUTEROL                          /00139501/ [Concomitant]
     Indication: PREMEDICATION
     Dosage: 2.5 MG, PRN
  16. BENADRYL                           /00000402/ [Concomitant]
     Indication: PREMEDICATION
     Dosage: 25 MG, PRN
     Route: 048

REACTIONS (1)
  - Device malfunction [Recovered/Resolved]
